FAERS Safety Report 6678618-5 (Version None)
Quarter: 2010Q2

REPORT INFORMATION
  Report Type: 
  Country: None (occurrence: None)
  Receive Date: 20100412
  Receipt Date: 20100412
  Transmission Date: 20101027
  Serious: Yes (Hospitalization)
  Sender: FDA-Public Use
  Company Number: None

PATIENT
  Age: 46 Year
  Sex: Female
  Weight: 85.3 kg

DRUGS (4)
  1. CLOFARABINE [Suspect]
     Indication: ACUTE MYELOID LEUKAEMIA
     Dosage: 70 MG IV DAILY X 5 DAYS
     Route: 042
     Dates: start: 20100104, end: 20100108
  2. ALLOPURINOL [Concomitant]
  3. CLOTRIMAZOLE [Concomitant]
  4. DEXAMETHASONE [Concomitant]

REACTIONS (3)
  - ACTIVITIES OF DAILY LIVING IMPAIRED [None]
  - ERYTHEMA [None]
  - PAIN IN EXTREMITY [None]
